FAERS Safety Report 10053529 (Version 1)
Quarter: 2014Q2

REPORT INFORMATION
  Report Type: Spontaneous
  Country: US (occurrence: US)
  Receive Date: 20140402
  Receipt Date: 20140402
  Transmission Date: 20141212
  Serious: No
  Sender: FDA-Public Use
  Company Number: US-PFIZER INC-2014090303

PATIENT
  Sex: Female

DRUGS (1)
  1. LYRICA [Suspect]
     Indication: SPINAL PAIN
     Dosage: 150 MG, 2X/DAY
     Dates: start: 201309

REACTIONS (9)
  - Dizziness [Unknown]
  - Dry throat [Unknown]
  - Rash [Unknown]
  - Pruritus [Unknown]
  - Urticaria [Unknown]
  - Somnolence [Unknown]
  - Memory impairment [Unknown]
  - Confusional state [Unknown]
  - Drug effect incomplete [Unknown]
